FAERS Safety Report 8823145 (Version 3)
Quarter: 2012Q4

REPORT INFORMATION
  Report Type: 
  Country: US (occurrence: US)
  Receive Date: 20121003
  Receipt Date: 20121101
  Transmission Date: 20130627
  Serious: Yes (Death)
  Sender: FDA-Public Use
  Company Number: US-CELGENEUS-163-21880-12100284

PATIENT
  Age: 95 Year
  Sex: Male
  Weight: 52.21 kg

DRUGS (14)
  1. REVLIMID [Suspect]
     Indication: MDS
     Dosage: 10 Milligram
     Route: 048
     Dates: start: 20110302, end: 20111103
  2. REVLIMID [Suspect]
     Dosage: 5 Milligram
     Route: 048
     Dates: start: 20111103, end: 20120419
  3. REVLIMID [Suspect]
     Dosage: 10 Milligram
     Route: 048
     Dates: start: 20120419, end: 20120712
  4. AVODART [Concomitant]
     Indication: DRUG USE FOR UNKNOWN INDICATION
     Dosage: .5 Milligram
     Route: 048
  5. CALCIUM CARBONATE [Concomitant]
     Indication: DRUG USE FOR UNKNOWN INDICATION
     Dosage: 1000 Milligram
     Route: 048
  6. CARVEDILOL [Concomitant]
     Indication: DRUG USE FOR UNKNOWN INDICATION
     Dosage: 6.25 Milligram
     Route: 048
  7. COUMADIN [Concomitant]
     Indication: HEART VALVE REPLACEMENT
     Dosage: 1 Milligram
     Route: 048
  8. FOLIC ACID [Concomitant]
     Indication: DRUG USE FOR UNKNOWN INDICATION
     Dosage: 2 Milligram
     Route: 048
  9. LASIX [Concomitant]
     Indication: DRUG USE FOR UNKNOWN INDICATION
     Dosage: 2 tabs a.m., 1 tab p.m.
     Route: 048
  10. PREVACID [Concomitant]
     Indication: DRUG USE FOR UNKNOWN INDICATION
     Dosage: 30 Milligram
     Route: 048
  11. SIMVASTATIN [Concomitant]
     Indication: DRUG USE FOR UNKNOWN INDICATION
     Dosage: 10 Milligram
     Route: 048
  12. VITAMIN D3 [Concomitant]
     Indication: DRUG USE FOR UNKNOWN INDICATION
     Route: 048
  13. ARANESP [Concomitant]
     Indication: ANEMIA
     Dosage: 500 Microgram
     Route: 065
     Dates: start: 20100713, end: 20120628
  14. VENOFER [Concomitant]
     Indication: IRON DEFICIENCY
     Dosage: 200 Milligram
     Route: 041
     Dates: start: 20110609, end: 20120531

REACTIONS (1)
  - Myocardial infarction [Fatal]
